FAERS Safety Report 5867751-3 (Version None)
Quarter: 2008Q3

REPORT INFORMATION
  Report Type: 
  Country: None (occurrence: None)
  Receive Date: 20080902
  Receipt Date: 20080822
  Transmission Date: 20090109
  Serious: Yes (Other)
  Sender: FDA-Public Use
  Company Number: US-SANOFI-SYNTHELABO-A03200803372

PATIENT
  Sex: Male

DRUGS (1)
  1. PLAVIX [Suspect]
     Indication: STENT PLACEMENT
     Dosage: UNK
     Route: 048
     Dates: start: 20080801

REACTIONS (2)
  - ALVEOLITIS ALLERGIC [None]
  - HYPERSENSITIVITY [None]
